FAERS Safety Report 19309498 (Version 1)
Quarter: 2021Q2

REPORT INFORMATION
  Report Type: Spontaneous
  Country: TR (occurrence: TR)
  Receive Date: 20210526
  Receipt Date: 20210526
  Transmission Date: 20210717
  Serious: Yes (Other)
  Sender: FDA-Public Use
  Company Number: NVSC2019TR095557

PATIENT
  Age: 43 Year
  Sex: Male

DRUGS (2)
  1. SANDIMMUN NEORAL [Suspect]
     Active Substance: CYCLOSPORINE
     Dosage: 1 DF, BID (DOSE:25MG, FOR 5 TO 6 YEARS)
     Route: 065
  2. SANDIMMUN NEORAL [Suspect]
     Active Substance: CYCLOSPORINE
     Indication: RENAL TRANSPLANT
     Dosage: 2 DF, BID (DOSE: 100 MG)
     Route: 065

REACTIONS (3)
  - Renal disorder [Unknown]
  - Product supply issue [Unknown]
  - Feeling abnormal [Unknown]
